FAERS Safety Report 17732494 (Version 1)
Quarter: 2020Q2

REPORT INFORMATION
  Report Type: Spontaneous
  Country: US (occurrence: US)
  Receive Date: 20200501
  Receipt Date: 20200501
  Transmission Date: 20200714
  Serious: Yes (Hospitalization)
  Sender: FDA-Public Use
  Company Number: US-TEVA-2020-US-1227453

PATIENT
  Sex: Female

DRUGS (26)
  1. OMEGA 3 [Concomitant]
     Active Substance: OMEGA-3 FATTY ACIDS
  2. DHEA [Concomitant]
     Active Substance: PRASTERONE
  3. MILK THISTLE [Concomitant]
     Active Substance: DIETARY SUPPLEMENT\HERBALS\MILK THISTLE
  4. ARMOUR THYROID [Concomitant]
     Active Substance: THYROID, PORCINE
  5. MAGNESIUM [Concomitant]
     Active Substance: MAGNESIUM
  6. HOMOCYSTEINE. [Concomitant]
     Active Substance: HOMOCYSTEINE
  7. RESVERATROL [Concomitant]
     Active Substance: DIETARY SUPPLEMENT\RESVERATROL
  8. PROBIOTIC [Concomitant]
     Active Substance: PROBIOTICS NOS
  9. RIBOFLAVIN [Concomitant]
     Active Substance: RIBOFLAVIN
  10. COLOSTRUM [Concomitant]
     Active Substance: DIETARY SUPPLEMENT
  11. VITAMIN D [Concomitant]
     Active Substance: VITAMIN D NOS
  12. MELATONIN [Concomitant]
     Active Substance: MELATONIN
  13. METHOCARBAMOL. [Concomitant]
     Active Substance: METHOCARBAMOL
  14. SYNRIBO [Suspect]
     Active Substance: OMACETAXINE MEPESUCCINATE
     Dosage: 2 MILLIGRAM DAILY; FREQUENCY:ONCE DAILY
     Route: 065
     Dates: start: 20171208
  15. METOPROLOL. [Concomitant]
     Active Substance: METOPROLOL
  16. VITAMIN C [Concomitant]
     Active Substance: ASCORBIC ACID
  17. LATANOPROST. [Concomitant]
     Active Substance: LATANOPROST
  18. DOXYCYCLINE. [Concomitant]
     Active Substance: DOXYCYCLINE
  19. COQ10 [Concomitant]
     Active Substance: UBIDECARENONE
  20. VITAMIN E [Concomitant]
     Active Substance: .ALPHA.-TOCOPHEROL
  21. TRAZODONE [Concomitant]
     Active Substance: TRAZODONE HYDROCHLORIDE
  22. XARELTO [Concomitant]
     Active Substance: RIVAROXABAN
  23. ACETYLCYSTINE [Concomitant]
  24. VITAMIN B12 [Concomitant]
     Active Substance: CYANOCOBALAMIN
  25. WHEY PROTEIN [Concomitant]
     Active Substance: WHEY
  26. SELENIUM [Concomitant]
     Active Substance: SELENIUM

REACTIONS (2)
  - Product dose omission [Unknown]
  - Hospitalisation [Unknown]
